FAERS Safety Report 19593633 (Version 1)
Quarter: 2021Q3

REPORT INFORMATION
  Report Type: Spontaneous
  Country: DE (occurrence: DE)
  Receive Date: 20210722
  Receipt Date: 20210722
  Transmission Date: 20211014
  Serious: Yes (Other)
  Sender: FDA-Public Use
  Company Number: DE-TEVA-2021-DE-1934405

PATIENT
  Sex: Female

DRUGS (8)
  1. VENLAFAXINE [Suspect]
     Active Substance: VENLAFAXINE HYDROCHLORIDE
     Dosage: UNIT DOSE: 300 MG, B.A.W.
     Dates: start: 20200301
  2. OLANZAPIN [Suspect]
     Active Substance: OLANZAPINE
     Indication: SLEEP DISORDER
     Dosage: UNIT DOSE: 5 MG
     Dates: start: 20200720, end: 20200726
  3. OLANZAPIN [Suspect]
     Active Substance: OLANZAPINE
     Dosage: UNIT DOSE: 2.5 MG
     Dates: start: 20200727, end: 20200730
  4. OLANZAPIN [Suspect]
     Active Substance: OLANZAPINE
     Dosage: UNIT DOSE: 7.5 MG
     Dates: start: 20200713, end: 20200719
  5. VENLAFAXINE [Suspect]
     Active Substance: VENLAFAXINE HYDROCHLORIDE
     Dosage: UNIT DOSE: 75 MG, B.A.W
     Dates: start: 20200301
  6. OLANZAPIN [Suspect]
     Active Substance: OLANZAPINE
     Indication: THINKING ABNORMAL
     Dosage: UNIT DOSE: 7.5 MG
     Dates: start: 20200301, end: 20200622
  7. OLANZAPIN [Suspect]
     Active Substance: OLANZAPINE
     Dosage: UNIT DOSE: 10 MG
     Dates: start: 20200623, end: 20200712
  8. MONTELUKAST [Concomitant]
     Active Substance: MONTELUKAST SODIUM
     Dosage: UNIT DOSE: 10 MG, TAKING FOR YEARS; B.A.W.

REACTIONS (3)
  - Weight increased [Recovering/Resolving]
  - Food craving [Recovering/Resolving]
  - Restlessness [Unknown]

NARRATIVE: CASE EVENT DATE: 2020
